FAERS Safety Report 7772796-2 (Version None)
Quarter: 2011Q3

REPORT INFORMATION
  Report Type: 
  Country: None (occurrence: None)
  Receive Date: 20110922
  Receipt Date: 20100802
  Transmission Date: 20111222
  Serious: No
  Sender: FDA-Public Use
  Company Number: US-ASTRAZENECA-2007UW08945

PATIENT
  Age: 47 Year
  Sex: Female
  Weight: 93 kg

DRUGS (23)
  1. METOPROLOL [Concomitant]
     Dates: start: 20011014
  2. LAMICTAL [Concomitant]
     Dosage: 50 MG - 200 MG DAILY
     Dates: start: 20011014
  3. SEROQUEL [Suspect]
     Route: 048
     Dates: start: 19991104, end: 20001114
  4. SEROQUEL [Suspect]
     Route: 048
     Dates: start: 19991104, end: 20001114
  5. GLUCOPHAGE [Concomitant]
     Dosage: 600 MG - 1500 MG DAILY
     Dates: start: 20011014
  6. RESTORIL [Concomitant]
     Dates: start: 20011014
  7. AVANDIA [Concomitant]
     Dates: start: 20080326
  8. SEROQUEL [Suspect]
     Indication: BIPOLAR DISORDER
     Route: 048
     Dates: start: 19991104, end: 20001114
  9. SEROQUEL [Suspect]
     Dosage: 100 TO 200 MG
     Route: 048
     Dates: start: 20000413, end: 20000419
  10. SEROQUEL [Suspect]
     Dosage: 100 TO 200 MG
     Route: 048
     Dates: start: 20000413, end: 20000419
  11. LIPITOR [Concomitant]
     Dates: start: 20000413
  12. ZESTRIL [Concomitant]
     Dates: start: 20000413
  13. TRAZODONE HYDROCHLORIDE [Concomitant]
     Dates: start: 20050407
  14. SEROQUEL [Suspect]
     Indication: PSYCHOTIC DISORDER
     Route: 048
     Dates: start: 19991104, end: 20001114
  15. PREMARIN [Concomitant]
     Dosage: 0.03 MG - 0.3 MG DAILY
     Dates: start: 20000413
  16. GEODON [Concomitant]
     Dates: start: 20020101
  17. VALIUM [Concomitant]
     Dates: start: 19950101
  18. HYDROCHLOROTHIAZIDE [Concomitant]
     Dates: start: 20050407
  19. PAXIL [Concomitant]
     Dates: start: 20000413
  20. TRILAFON [Concomitant]
  21. FAMOTIDINE [Concomitant]
     Dates: start: 20080326
  22. ATENOLOL [Concomitant]
     Dates: start: 20050407
  23. TAGAMET [Concomitant]
     Dates: start: 19931031

REACTIONS (7)
  - SENSITIVITY OF TEETH [None]
  - DIABETES MELLITUS [None]
  - TYPE 2 DIABETES MELLITUS [None]
  - TOOTHACHE [None]
  - OBESITY [None]
  - BACK PAIN [None]
  - WEIGHT INCREASED [None]
